FAERS Safety Report 18004491 (Version 1)
Quarter: 2020Q3

REPORT INFORMATION
  Report Type: Spontaneous
  Country: CA (occurrence: CA)
  Receive Date: 20200710
  Receipt Date: 20200710
  Transmission Date: 20201103
  Serious: Yes (Life-Threatening, Hospitalization)
  Sender: FDA-Public Use
  Company Number: CA-009507513-2007CAN002842

PATIENT
  Age: 35 Year
  Sex: Female

DRUGS (12)
  1. ACETAMINOPHEN. [Concomitant]
     Active Substance: ACETAMINOPHEN
     Dosage: DOSAGE FORM: NOT SPECIFIED
     Route: 065
  2. OVIDREL [Suspect]
     Active Substance: CHORIOGONADOTROPIN ALFA
     Indication: IN VITRO FERTILISATION
     Dosage: DOSAGE FORM: SOLUTION SUBCUTANEOUS; 250 MICROGRAM, ONCE
     Route: 058
  3. ASPIRIN. [Concomitant]
     Active Substance: ASPIRIN
     Dosage: DOSAGE FORM: NOT SPECIFIED
     Route: 065
  4. LUVERIS [Suspect]
     Active Substance: LUTROPIN ALFA
     Indication: IN VITRO FERTILISATION
     Dosage: DOSAGE FORM: POWDER FOR SOLUTION SUBCUTANEOUS; 75 UNITS, 1 EVERY 1 DAYS
     Route: 058
  5. ESTROGEL [Concomitant]
     Active Substance: ESTRADIOL
     Dosage: DOSAGE FORM: NOT SPECIFIED
     Route: 065
  6. PROMETRIUM [Concomitant]
     Active Substance: PROGESTERONE
     Dosage: DOSAGE FORM: LIQUID INTRAMUSCULAR
     Route: 065
  7. GONAL?F [Suspect]
     Active Substance: FOLLITROPIN
     Indication: IN VITRO FERTILISATION
     Dosage: DOSAGE FORM: LIQUID INTRAMUSCULAR; 175 UNITS, 1 EVERY 1DAYS
     Route: 058
  8. AZITHROMYCIN ANHYDROUS. [Concomitant]
     Active Substance: AZITHROMYCIN ANHYDROUS
     Dosage: DOSAGE FORM: NOT SPECIFIED
     Route: 065
  9. FOLIC ACID. [Concomitant]
     Active Substance: FOLIC ACID
     Dosage: DOSAGE FORM: NOT SPECIFIED
     Route: 065
  10. LETROZOLE. [Concomitant]
     Active Substance: LETROZOLE
     Route: 065
  11. ORGALUTRAN [Suspect]
     Active Substance: GANIRELIX ACETATE
     Indication: IN VITRO FERTILISATION
     Dosage: STRENGTH: 250 UG/0.5 ML; 0.25 MILLIGRAM, 1 EVERY 1 DAYS; DOSAGE FORM: SOLUTION SUBCUTANEOUS
     Route: 058
  12. LORAZEPAM. [Concomitant]
     Active Substance: LORAZEPAM
     Dosage: DOSAGE FORM: NOT SPECIFIED
     Route: 065

REACTIONS (4)
  - Polycystic ovaries [Recovered/Resolved]
  - Ovarian hyperstimulation syndrome [Recovered/Resolved]
  - Gait disturbance [Recovered/Resolved]
  - Ovarian enlargement [Recovered/Resolved]
